FAERS Safety Report 6329703-9 (Version None)
Quarter: 2009Q3

REPORT INFORMATION
  Report Type: 
  Country: None (occurrence: None)
  Receive Date: 20090826
  Receipt Date: 20090813
  Transmission Date: 20100115
  Serious: Yes (Disabling)
  Sender: FDA-Public Use
  Company Number: GB-MYLANLABS-2009S1014527

PATIENT
  Age: 90 Year
  Sex: Female
  Weight: 50 kg

DRUGS (4)
  1. BUSPIRONE HCL [Suspect]
     Indication: BIPOLAR DISORDER
     Route: 048
     Dates: start: 19900101, end: 20070601
  2. CO-BENELDOPA [Concomitant]
     Indication: PARKINSON'S DISEASE
     Dates: start: 20070101
  3. LITHIUM CARBONATE [Concomitant]
     Indication: BIPOLAR DISORDER
     Route: 048
  4. NULYTELY [Concomitant]
     Indication: DRUG USE FOR UNKNOWN INDICATION
     Route: 048

REACTIONS (1)
  - PARKINSONISM [None]
